FAERS Safety Report 11111916 (Version 1)
Quarter: 2015Q2

REPORT INFORMATION
  Report Type: Spontaneous
  Country: US (occurrence: None)
  Receive Date: 20150512
  Receipt Date: 20150512
  Transmission Date: 20150821
  Serious: Yes (Death)
  Sender: FDA-Public Use
  Company Number: CPI 6924

PATIENT
  Age: 65 Year
  Sex: Female

DRUGS (2)
  1. N-ACETYLCYSTEINE [Suspect]
     Active Substance: ACETYLCYSTEINE
     Indication: PROPHYLAXIS
     Dosage: OVER 21 H
     Route: 042
  2. N-ACETYLCYSTEINE [Suspect]
     Active Substance: ACETYLCYSTEINE
     Indication: LIVER DISORDER
     Dosage: OVER 21 H
     Route: 042

REACTIONS (3)
  - Blood bilirubin increased [None]
  - Multi-organ failure [None]
  - Fungaemia [None]

NARRATIVE: CASE EVENT DATE: 2014
